FAERS Safety Report 20411840 (Version 2)
Quarter: 2022Q1

REPORT INFORMATION
  Report Type: Spontaneous
  Country: None (occurrence: TN)
  Receive Date: 20220201
  Receipt Date: 20220308
  Transmission Date: 20220423
  Serious: Yes (Hospitalization)
  Sender: FDA-Public Use
  Company Number: TN-ALSI-2022000018

PATIENT
  Age: 75 Year
  Sex: Male

DRUGS (1)
  1. OXYGEN [Suspect]
     Active Substance: OXYGEN
     Indication: COVID-19
     Route: 055

REACTIONS (2)
  - Burns third degree [Unknown]
  - Burns third degree [Unknown]

NARRATIVE: CASE EVENT DATE: 20220123
